FAERS Safety Report 8174560-1 (Version None)
Quarter: 2012Q1

REPORT INFORMATION
  Report Type: 
  Country: None (occurrence: None)
  Receive Date: 20120229
  Receipt Date: 20120224
  Transmission Date: 20120608
  Serious: Yes (Hospitalization, Other)
  Sender: FDA-Public Use
  Company Number: FR-PFIZER INC-2012048915

PATIENT
  Age: 89 Year
  Sex: Male

DRUGS (6)
  1. FLUVASTATIN SODIUM [Concomitant]
     Dosage: 1 DF, 3X/DAY
     Route: 048
  2. IRBESARTAN [Suspect]
     Indication: HYPERTENSION
     Dosage: 150 MG, 1X/DAY
     Route: 048
     Dates: end: 20111101
  3. AMLODIPINE BESYLATE [Suspect]
     Indication: HYPERTENSION
     Dosage: 5 MG, 2X/DAY
     Route: 048
     Dates: start: 20111024, end: 20111101
  4. ALLOPURINOL [Concomitant]
     Dosage: 200 MG, 1X/DAY
     Route: 048
  5. LORAZEPAM [Concomitant]
     Dosage: 3 DF, 1X/DAY
     Route: 048
  6. FUROSEMIDE [Concomitant]
     Dosage: 40 MG, 1X/DAY
     Route: 048

REACTIONS (3)
  - HYPOTENSION [None]
  - BLOOD CREATININE INCREASED [None]
  - FALL [None]
